FAERS Safety Report 16711576 (Version 1)
Quarter: 2019Q3

REPORT INFORMATION
  Report Type: Spontaneous
  Country: US (occurrence: US)
  Receive Date: 20190816
  Receipt Date: 20190816
  Transmission Date: 20191004
  Serious: No
  Sender: FDA-Public Use
  Company Number: US-SA-2019SA222631

PATIENT
  Sex: Female

DRUGS (1)
  1. DUPIXENT [Suspect]
     Active Substance: DUPILUMAB
     Indication: DERMATITIS ATOPIC
     Dosage: 300 MG, QOW
     Route: 058

REACTIONS (5)
  - Lip swelling [Recovered/Resolved]
  - Chemical burn [Recovered/Resolved]
  - Skin discolouration [Recovered/Resolved]
  - Lip pain [Recovered/Resolved]
  - Rash [Recovered/Resolved]
